FAERS Safety Report 18048371 (Version 2)
Quarter: 2021Q2

REPORT INFORMATION
  Report Type: Spontaneous
  Country: US (occurrence: US)
  Receive Date: 20200721
  Receipt Date: 20210615
  Transmission Date: 20210717
  Serious: Yes (Other)
  Sender: FDA-Public Use
  Company Number: US-GLAXOSMITHKLINE-US2020137220

PATIENT

DRUGS (2)
  1. RANITIDINE. [Suspect]
     Active Substance: RANITIDINE
     Dosage: 300 MG PRESCRIPTION
     Route: 065
     Dates: start: 200001, end: 200801
  2. RANITIDINE. [Suspect]
     Active Substance: RANITIDINE
     Dates: start: 20000615, end: 20080615

REACTIONS (1)
  - Colorectal cancer [Unknown]
